FAERS Safety Report 16686958 (Version 1)
Quarter: 2019Q3

REPORT INFORMATION
  Report Type: Spontaneous
  Country: CA (occurrence: CA)
  Receive Date: 20190809
  Receipt Date: 20190809
  Transmission Date: 20191004
  Serious: Yes (Other)
  Sender: FDA-Public Use
  Company Number: CA-TEVA-2019-CA-1089148

PATIENT
  Age: 80 Year
  Sex: Male
  Weight: 72 kg

DRUGS (9)
  1. FOLIC ACID. [Concomitant]
     Active Substance: FOLIC ACID
  2. IMODIUM [Concomitant]
     Active Substance: LOPERAMIDE HYDROCHLORIDE
  3. BISOPROLOL [Concomitant]
     Active Substance: BISOPROLOL
  4. LEVODOPA [Concomitant]
     Active Substance: LEVODOPA
  5. ROSUVASTATIN. [Concomitant]
     Active Substance: ROSUVASTATIN
  6. RIVAROXABAN [Concomitant]
     Active Substance: RIVAROXABAN
  7. DIGOXIN. [Concomitant]
     Active Substance: DIGOXIN
  8. PANTOPRAZOLE [Concomitant]
     Active Substance: PANTOPRAZOLE
  9. METHOTREXATE. [Suspect]
     Active Substance: METHOTREXATE
     Indication: PRODUCT USED FOR UNKNOWN INDICATION
     Route: 065

REACTIONS (3)
  - Haematochezia [Not Recovered/Not Resolved]
  - Abdominal pain [Not Recovered/Not Resolved]
  - Condition aggravated [Not Recovered/Not Resolved]
